FAERS Safety Report 13716261 (Version 2)
Quarter: 2017Q3

REPORT INFORMATION
  Report Type: Report from Study
  Country: MX (occurrence: MX)
  Receive Date: 20170705
  Receipt Date: 20170822
  Transmission Date: 20171127
  Serious: Yes (Other)
  Sender: FDA-Public Use
  Company Number: MX-UCBSA-2017025494

PATIENT
  Age: 75 Year
  Sex: Female
  Weight: 68 kg

DRUGS (14)
  1. EUTIROX [Concomitant]
     Active Substance: LEVOTHYROXINE SODIUM
     Indication: THYROID DISORDER
     Dosage: 50 MG, ONCE DAILY (QD)
     Dates: start: 201704
  2. SPIRIVA [Concomitant]
     Active Substance: TIOTROPIUM BROMIDE MONOHYDRATE
     Indication: BRONCHITIS
     Dosage: UNK
     Route: 045
     Dates: start: 20170623
  3. BENSERAZIDE HYDROCHLORIDE W/LEVODOPA [Concomitant]
     Indication: PARKINSON^S DISEASE
     Dosage: UNK, 3X/DAY (TID); 1 AND ? OF A TABLET AT 8AM AND 1PM AND 1 TABLET AT 5PM; STRENGTH: 25MG/100MG
     Dates: start: 201703
  4. ROTIGOTINE [Suspect]
     Active Substance: ROTIGOTINE
     Dosage: GRADULLY INCREASED DOSE
     Route: 062
  5. TRADOL [Concomitant]
     Active Substance: TRAMADOL HYDROCHLORIDE
     Indication: ARTHRALGIA
     Dosage: 10 DROPS IN 5 ML WATER
  6. FUROSEMIDE. [Concomitant]
     Active Substance: FUROSEMIDE
     Indication: PRODUCT USED FOR UNKNOWN INDICATION
     Dosage: 20 MG, ONCE DAILY (QD)
  7. LEVOCETIRIZINE [Concomitant]
     Active Substance: LEVOCETIRIZINE
     Indication: PRODUCT USED FOR UNKNOWN INDICATION
     Dosage: 5 MG, ONCE DAILY (QD)
     Dates: start: 201706
  8. INDERALICI [Concomitant]
     Indication: PRODUCT USED FOR UNKNOWN INDICATION
     Dosage: 20 MG, 2X/DAY (BID)
  9. SALMETEROL XINAFOATE [Concomitant]
     Active Substance: SALMETEROL XINAFOATE
     Indication: BRONCHITIS
     Dosage: 250 MG, ONCE DAILY (QD)
     Route: 045
     Dates: start: 20170623
  10. ROTIGOTINE [Suspect]
     Active Substance: ROTIGOTINE
     Indication: PARKINSON^S DISEASE
     Dosage: 2 MG, ONCE DAILY (QD)
     Route: 062
     Dates: start: 2015
  11. ALDACTONE [Concomitant]
     Active Substance: SPIRONOLACTONE
     Indication: PRODUCT USED FOR UNKNOWN INDICATION
     Dosage: 50 MG, ONCE DAILY (QD)
     Dates: start: 20170629
  12. MIRTAZAPINE. [Concomitant]
     Active Substance: MIRTAZAPINE
     Indication: MOOD ALTERED
     Dosage: 15 MG, ONCE DAILY (QD)
     Dates: start: 2016
  13. ROTIGOTINE [Suspect]
     Active Substance: ROTIGOTINE
     Dosage: 6 MG, ONCE DAILY (QD)
     Route: 062
     Dates: end: 201703
  14. MONTELUKAST [Concomitant]
     Active Substance: MONTELUKAST SODIUM
     Indication: PRODUCT USED FOR UNKNOWN INDICATION
     Dosage: 5 MG, ONCE DAILY (QD)
     Dates: start: 201706

REACTIONS (3)
  - Arthralgia [Recovered/Resolved]
  - Drug ineffective [Unknown]
  - Device breakage [Recovering/Resolving]

NARRATIVE: CASE EVENT DATE: 201703
